FAERS Safety Report 5724754-7 (Version None)
Quarter: 2008Q2

REPORT INFORMATION
  Report Type: 
  Country: None (occurrence: None)
  Receive Date: 20080501
  Receipt Date: 20080422
  Transmission Date: 20081010
  Serious: Yes (Other)
  Sender: FDA-Public Use
  Company Number: PHHO2008US01150

PATIENT
  Age: 49 Year
  Sex: Female

DRUGS (3)
  1. LIORESAL [Suspect]
     Indication: MUSCLE SPASTICITY
     Dosage: 27.5 UG, QD
     Route: 037
  2. LIORESAL [Suspect]
     Dosage: 27.5 UG, QD
     Route: 037
     Dates: start: 20070728
  3. BACLOFEN [Suspect]
     Indication: MUSCLE SPASTICITY
     Dosage: UNK, UNK
     Route: 048
     Dates: end: 20070801

REACTIONS (7)
  - CATHETER PLACEMENT [None]
  - HEADACHE [None]
  - HYPERSENSITIVITY [None]
  - HYPERTONIA [None]
  - MUSCLE SPASMS [None]
  - MUSCULAR WEAKNESS [None]
  - PYREXIA [None]
